FAERS Safety Report 14348121 (Version 1)
Quarter: 2018Q1

REPORT INFORMATION
  Report Type: Spontaneous
  Country: FR (occurrence: FR)
  Receive Date: 20180103
  Receipt Date: 20180103
  Transmission Date: 20180509
  Serious: Yes (Hospitalization, Other)
  Sender: FDA-Public Use
  Company Number: FR-MYLANLABS-2017M1081146

PATIENT
  Age: 49 Year
  Sex: Male

DRUGS (3)
  1. PREDNISOLONE. [Concomitant]
     Active Substance: PREDNISOLONE
     Indication: NEUROLOGICAL SYMPTOM
     Dosage: 80 MG/DAY
     Route: 050
  2. CYTARABINE. [Suspect]
     Active Substance: CYTARABINE
     Indication: METASTASES TO MENINGES
     Dosage: FIRST DOSE INJECTED BY LUMBAR ROUTE AT DOSE OF 50MG
     Route: 037
  3. DABRAFENIB [Concomitant]
     Active Substance: DABRAFENIB
     Indication: METASTASES TO MENINGES
     Dosage: UNK
     Route: 065

REACTIONS (1)
  - Meningitis chemical [Recovered/Resolved]
